FAERS Safety Report 7162220-5 (Version None)
Quarter: 2010Q4

REPORT INFORMATION
  Report Type: 
  Country: None (occurrence: None)
  Receive Date: 20101215
  Receipt Date: 20090917
  Transmission Date: 20110411
  Serious: Yes (Other)
  Sender: FDA-Public Use
  Company Number: US-PFIZER INC-2009272837

PATIENT
  Sex: Female

DRUGS (8)
  1. LYRICA [Suspect]
     Indication: NERVE INJURY
     Dosage: 50 MG, 2X/DAY
  2. PREDNISONE [Suspect]
     Indication: MYASTHENIA GRAVIS
     Dosage: TWO DAILY
  3. SYNTHROID [Concomitant]
     Dosage: UNK
  4. AMITRIPTYLINE [Concomitant]
     Dosage: 100 MG, 1X/DAY
  5. TRAMADOL [Concomitant]
     Dosage: THREE DAILY
  6. LEXAPRO [Concomitant]
     Dosage: UNK
  7. CYMBALTA [Concomitant]
     Dosage: UNK
  8. VALTREX [Concomitant]
     Dosage: UNK

REACTIONS (2)
  - MYASTHENIA GRAVIS [None]
  - WEIGHT INCREASED [None]
